FAERS Safety Report 19087704 (Version 4)
Quarter: 2021Q3

REPORT INFORMATION
  Report Type: Report from Study
  Country: US (occurrence: US)
  Receive Date: 20210402
  Receipt Date: 20210823
  Transmission Date: 20211014
  Serious: No
  Sender: FDA-Public Use
  Company Number: NVSC2021US070911

PATIENT
  Age: 35 Year
  Sex: Male

DRUGS (2)
  1. KESIMPTA [Suspect]
     Active Substance: OFATUMUMAB
     Indication: CLINICALLY ISOLATED SYNDROME
     Dosage: 20 MG, QMO
     Route: 058
     Dates: start: 20210220
  2. KESIMPTA [Suspect]
     Active Substance: OFATUMUMAB
     Indication: MULTIPLE SCLEROSIS
     Dosage: UNK
     Route: 065

REACTIONS (4)
  - Product dose omission issue [Unknown]
  - Confusional state [Unknown]
  - Sleep disorder [Unknown]
  - Pain [Unknown]

NARRATIVE: CASE EVENT DATE: 20210601
